FAERS Safety Report 7348815-4 (Version None)
Quarter: 2011Q1

REPORT INFORMATION
  Report Type: 
  Country: None (occurrence: None)
  Receive Date: 20110314
  Receipt Date: 20100129
  Transmission Date: 20110831
  Serious: No
  Sender: FDA-Public Use
  Company Number: US-BAYER-201012872NA

PATIENT
  Age: 27 Year
  Sex: Female

DRUGS (1)
  1. MIRENA [Suspect]
     Indication: CONTRACEPTION
     Dosage: 20 ?G/D, CONT
     Route: 015
     Dates: end: 20090807

REACTIONS (5)
  - MUSCLE SPASMS [None]
  - POLLAKIURIA [None]
  - POST PROCEDURAL HAEMORRHAGE [None]
  - JOINT SWELLING [None]
  - MENSTRUATION IRREGULAR [None]
